FAERS Safety Report 8190327-2 (Version None)
Quarter: 2012Q1

REPORT INFORMATION
  Report Type: 
  Country: None (occurrence: None)
  Receive Date: 20120307
  Receipt Date: 20120222
  Transmission Date: 20120608
  Serious: Yes (Other)
  Sender: FDA-Public Use
  Company Number: GB-MYLANLABS-2012S1002657

PATIENT
  Age: 80 Year
  Sex: Male

DRUGS (8)
  1. LAMOTRIGINE [Suspect]
     Indication: EPILEPSY
  2. TAMSULOSIN HCL [Concomitant]
     Indication: PRODUCT USED FOR UNKNOWN INDICATION
  3. FINASTERIDE [Concomitant]
     Indication: PRODUCT USED FOR UNKNOWN INDICATION
     Route: 048
  4. LATANOPROST [Concomitant]
     Indication: GLAUCOMA
     Route: 047
  5. RAMIPRIL [Suspect]
     Indication: HYPERTENSION
     Route: 048
  6. DOUBLEBASE [Concomitant]
     Indication: PRODUCT USED FOR UNKNOWN INDICATION
  7. WARFARIN SODIUM [Concomitant]
     Indication: PRODUCT USED FOR UNKNOWN INDICATION
  8. LEVOTHYROXINE SODIUM [Concomitant]
     Indication: PRODUCT USED FOR UNKNOWN INDICATION
     Dates: start: 20120125

REACTIONS (1)
  - MYELODYSPLASTIC SYNDROME [None]
